FAERS Safety Report 25763760 (Version 1)
Quarter: 2025Q3

REPORT INFORMATION
  Report Type: Spontaneous
  Country: US (occurrence: US)
  Receive Date: 20250905
  Receipt Date: 20250905
  Transmission Date: 20251020
  Serious: No
  Sender: DOMPE FARMACEUTICI
  Company Number: US-FARMAPROD-202412-4084

PATIENT
  Sex: Male
  Weight: 151.95 kg

DRUGS (17)
  1. OXERVATE [Suspect]
     Active Substance: CENEGERMIN-BKBJ
     Indication: Product used for unknown indication
     Route: 047
     Dates: start: 20241030
  2. AMLODIPINE BESYLATE [Concomitant]
     Active Substance: AMLODIPINE BESYLATE
  3. LASIX [Concomitant]
     Active Substance: FUROSEMIDE
  4. GLUCOSAMINE-CHONDROITIN-MSM [Concomitant]
  5. FISH OIL [Concomitant]
     Active Substance: FISH OIL
  6. CLOBETASOL PROPIONATE [Concomitant]
     Active Substance: CLOBETASOL PROPIONATE
  7. LATANOPROST [Concomitant]
     Active Substance: LATANOPROST
  8. TIMOLOL MALEATE [Concomitant]
     Active Substance: TIMOLOL MALEATE
  9. ATORVASTATIN CALCIUM [Concomitant]
     Active Substance: ATORVASTATIN CALCIUM
  10. TIMOLOL MALEATE [Concomitant]
     Active Substance: TIMOLOL MALEATE
  11. FARXIGA [Concomitant]
     Active Substance: DAPAGLIFLOZIN PROPANEDIOL
  12. HUMALOG MIX 50-50 KWIKPEN [Concomitant]
  13. ASPIRIN [Concomitant]
     Active Substance: ASPIRIN
  14. TAMSULOSIN HYDROCHLORIDE [Concomitant]
     Active Substance: TAMSULOSIN HYDROCHLORIDE
  15. ALLOPURINOL [Concomitant]
     Active Substance: ALLOPURINOL
  16. OZEMPIC [Concomitant]
     Active Substance: SEMAGLUTIDE
  17. VALACYCLOVIR [Concomitant]
     Active Substance: VALACYCLOVIR HYDROCHLORIDE

REACTIONS (1)
  - Headache [Unknown]
